FAERS Safety Report 20521143 (Version 1)
Quarter: 2022Q1

REPORT INFORMATION
  Report Type: Report from Study
  Country: PR (occurrence: PR)
  Receive Date: 20220226
  Receipt Date: 20220226
  Transmission Date: 20220423
  Serious: Yes (Hospitalization)
  Sender: FDA-Public Use
  Company Number: PR-ABBVIE-22K-131-4292971-00

PATIENT
  Age: 48 Year
  Sex: Male

DRUGS (5)
  1. HUMIRA [Suspect]
     Active Substance: ADALIMUMAB
     Indication: Crohn^s disease
     Dosage: 40MG/0.8ML
     Route: 058
     Dates: start: 20180228
  2. HUMIRA [Suspect]
     Active Substance: ADALIMUMAB
     Dosage: 40MG/0.4ML
     Route: 058
  3. TOZINAMERAN [Concomitant]
     Active Substance: TOZINAMERAN
     Indication: COVID-19 immunisation
     Dosage: 1ST DOSE
     Route: 030
     Dates: start: 20210917, end: 20210917
  4. TOZINAMERAN [Concomitant]
     Active Substance: TOZINAMERAN
     Dosage: 2ND DOSE
     Route: 030
     Dates: start: 20211105, end: 20211105
  5. ELASOMERAN [Concomitant]
     Active Substance: ELASOMERAN
     Indication: COVID-19 immunisation
     Dosage: 3RD DOSE
     Route: 030
     Dates: start: 20211130, end: 20211130

REACTIONS (1)
  - Haemoglobin decreased [Recovering/Resolving]

NARRATIVE: CASE EVENT DATE: 20220201
